FAERS Safety Report 4607225-0 (Version None)
Quarter: 2005Q1

REPORT INFORMATION
  Report Type: 
  Country: None (occurrence: None)
  Receive Date: 20050310
  Receipt Date: 20050222
  Transmission Date: 20050727
  Serious: Yes (Hospitalization)
  Sender: FDA-Public Use
  Company Number: 2004BI002036

PATIENT
  Age: 55 Year
  Sex: Female

DRUGS (11)
  1. AVONEX [Suspect]
     Indication: MULTIPLE SCLEROSIS
     Dosage: 30 UG;QW;IM
     Route: 030
     Dates: start: 20011029, end: 20040801
  2. DOXEPIN HCL [Concomitant]
  3. PROVIGIL [Concomitant]
  4. VICODIN [Concomitant]
  5. PAXIL [Concomitant]
  6. METHADONE [Concomitant]
  7. DANTRIUM [Concomitant]
  8. REGLAN [Concomitant]
  9. BEXTRA [Concomitant]
  10. MS CONTIN [Concomitant]
  11. ACTIQ [Concomitant]

REACTIONS (6)
  - BLOOD CREATINE PHOSPHOKINASE INCREASED [None]
  - COMA [None]
  - GRAND MAL CONVULSION [None]
  - LACTIC ACIDOSIS [None]
  - MULTIPLE SCLEROSIS [None]
  - PNEUMONIA [None]
